FAERS Safety Report 9941660 (Version 1)
Quarter: 2014Q1

REPORT INFORMATION
  Report Type: Report from Study
  Country: US (occurrence: US)
  Receive Date: 20140303
  Receipt Date: 20140303
  Transmission Date: 20141002
  Serious: No
  Sender: FDA-Public Use
  Company Number: US-ABBVIE-13P-163-1039969-00

PATIENT
  Age: 57 Year
  Sex: Female

DRUGS (11)
  1. HUMIRA [Suspect]
     Indication: CROHN^S DISEASE
     Dosage: LOADING DOSE
     Dates: start: 20130110
  2. GENERIC PLAQUENIL [Concomitant]
     Indication: SYSTEMIC LUPUS ERYTHEMATOSUS
  3. ASACOL [Concomitant]
     Indication: CROHN^S DISEASE
  4. ESTRADIOL [Concomitant]
     Indication: HORMONE REPLACEMENT THERAPY
     Dosage: DAILY
  5. GENERIC XANAX [Concomitant]
     Indication: PRODUCT USED FOR UNKNOWN INDICATION
     Dosage: UP TO 3 TIMES A DAY WHEN ANXIOUS
  6. GENERIC ZOLOFT [Concomitant]
     Indication: DEPRESSION
     Dosage: AT BEDTIME
  7. FOLIC ACID [Concomitant]
     Indication: VITAMIN SUPPLEMENTATION
     Dosage: AT BEDTIME
  8. METHOTREXATE [Concomitant]
     Indication: CROHN^S DISEASE
  9. VITAMIN D [Concomitant]
     Indication: VITAMIN D DECREASED
  10. LORTAB [Concomitant]
     Indication: PAIN
     Dosage: 10/500 CAN TAKE UP TO 6 A DAY BUT TAKES MAYBE 3 A DAY
  11. FUROSEMIDE [Concomitant]
     Indication: OEDEMA
     Dosage: ONE TO TWO

REACTIONS (5)
  - Fatigue [Not Recovered/Not Resolved]
  - Headache [Not Recovered/Not Resolved]
  - Muscular weakness [Not Recovered/Not Resolved]
  - Eye irritation [Not Recovered/Not Resolved]
  - Arthralgia [Not Recovered/Not Resolved]
